FAERS Safety Report 7037527-2 (Version None)
Quarter: 2010Q4

REPORT INFORMATION
  Report Type: 
  Country: None (occurrence: None)
  Receive Date: 20101011
  Receipt Date: 20101004
  Transmission Date: 20110411
  Serious: Yes (Death)
  Sender: FDA-Public Use
  Company Number: B0678688A

PATIENT
  Sex: Male
  Weight: 113 kg

DRUGS (7)
  1. AVANDIA [Suspect]
     Route: 048
     Dates: start: 20040301, end: 20100809
  2. METFORMIN [Concomitant]
     Route: 048
     Dates: start: 20020101, end: 20100809
  3. APROVEL [Concomitant]
     Indication: HYPERTENSION
     Route: 048
     Dates: start: 20050101, end: 20100809
  4. ELTROXIN [Concomitant]
     Route: 048
     Dates: start: 20000101, end: 20100809
  5. FURIX [Concomitant]
     Indication: DIURETIC THERAPY
     Route: 048
     Dates: start: 20040101, end: 20100809
  6. KALEORID [Concomitant]
     Route: 048
     Dates: start: 20100101, end: 20100809
  7. SIMVASTATIN [Concomitant]
     Route: 048
     Dates: start: 20030101, end: 20100809

REACTIONS (1)
  - SUDDEN DEATH [None]
